FAERS Safety Report 8041217-7 (Version None)
Quarter: 2012Q1

REPORT INFORMATION
  Report Type: 
  Country: None (occurrence: None)
  Receive Date: 20120112
  Receipt Date: 20120103
  Transmission Date: 20120608
  Serious: No
  Sender: FDA-Public Use
  Company Number: US-PFIZER INC-2012001673

PATIENT
  Sex: Female
  Weight: 98.866 kg

DRUGS (16)
  1. DETROL LA [Suspect]
     Indication: INCONTINENCE
     Dosage: 2 MG, 2X/DAY
     Route: 048
     Dates: start: 20110701
  2. NITROFURANTOIN [Suspect]
     Dosage: 50 MG, 1X/DAY
  3. DILANTIN [Concomitant]
     Indication: EPILEPSY
     Dosage: 300 MG, 2X/DAY
  4. SEROQUEL [Concomitant]
     Indication: SLEEP DISORDER
     Dosage: 100 MG, DAILY
  5. DEPAKOTE ER [Concomitant]
     Indication: AFFECTIVE DISORDER
     Dosage: 1000 MG, DAILY
  6. SEROQUEL [Concomitant]
     Indication: AFFECTIVE DISORDER
  7. MULTIVITAMINS AND IRON [Concomitant]
     Indication: ANAEMIA
     Dosage: UNK, DAILY
  8. PRISTIQ [Concomitant]
     Indication: DEPRESSION
     Dosage: 100 MG, DAILY
  9. FOLIC ACID [Concomitant]
     Indication: SUPPLEMENTATION THERAPY
     Dosage: 1 MG, DAILY
  10. LASIX [Concomitant]
     Indication: DIURETIC THERAPY
     Dosage: 20 MG, DAILY
  11. AMBIEN [Concomitant]
     Indication: SLEEP DISORDER
     Dosage: 10 MG, DAILY
  12. NITROFURANTOIN [Suspect]
     Indication: PROPHYLAXIS URINARY TRACT INFECTION
     Dosage: UNK
  13. METOPROLOL [Concomitant]
     Indication: HYPERTENSION
     Dosage: 25 MG, 2X/DAY
  14. METHOTREXATE [Concomitant]
     Indication: RHEUMATOID ARTHRITIS
     Dosage: 100 MG, WEEKLY
  15. CALCIUM WITH VITAMIN D [Concomitant]
     Indication: BONE DISORDER
     Dosage: UNK, 2X/DAY
  16. PRILOSEC [Concomitant]
     Indication: GASTROOESOPHAGEAL REFLUX DISEASE
     Dosage: 20 MG, DAILY

REACTIONS (1)
  - DRUG INEFFECTIVE [None]
